FAERS Safety Report 9599881 (Version 1)
Quarter: 2013Q4

REPORT INFORMATION
  Report Type: Spontaneous
  Country: US (occurrence: US)
  Receive Date: 20131004
  Receipt Date: 20131004
  Transmission Date: 20140711
  Serious: No
  Sender: FDA-Public Use
  Company Number: US-AMGEN-USASP2013031957

PATIENT
  Age: 34 Year
  Sex: Female
  Weight: 71.66 kg

DRUGS (12)
  1. ENBREL [Suspect]
     Indication: RHEUMATOID ARTHRITIS
     Dosage: 50 MG, QWK
     Route: 058
  2. IRON [Concomitant]
     Dosage: UNK
  3. CALCIUM [Concomitant]
     Dosage: 500 UNK, UNK
  4. HUMALOG [Concomitant]
     Dosage: 100/ML UNK, UNK
  5. PREDNISONE [Concomitant]
     Dosage: 1 MG, UNK
  6. FOLIC ACID [Concomitant]
     Dosage: UNK
  7. POTASSIUM [Concomitant]
     Dosage: 75 MG, UNK
  8. METHOTREXATE [Concomitant]
     Dosage: 2.5 MG, UNK
  9. HYDROCODONE CP [Concomitant]
     Dosage: UNK
  10. OXYCODONE [Concomitant]
     Dosage: 5 MG, UNK
  11. OMEGA 3                            /01334101/ [Concomitant]
     Dosage: 1000 MG, UNK
  12. MULTIVITAMINS, PLAIN [Concomitant]
     Dosage: UNK

REACTIONS (1)
  - Arthralgia [Unknown]
